FAERS Safety Report 7000872-0 (Version None)
Quarter: 2010Q3

REPORT INFORMATION
  Report Type: 
  Country: None (occurrence: None)
  Receive Date: 20100920
  Receipt Date: 20100908
  Transmission Date: 20110219
  Serious: Yes (Hospitalization, Other)
  Sender: FDA-Public Use
  Company Number: PHHY2010DE44642

PATIENT
  Sex: Female
  Weight: 120 kg

DRUGS (2)
  1. RASILEZ [Suspect]
     Indication: HYPERTENSION
     Dosage: 1 DF, QD
     Route: 048
     Dates: start: 20100622, end: 20100625
  2. ANGIOTENSIN II ANTAGONISTS [Concomitant]

REACTIONS (14)
  - ANAPHYLACTIC REACTION [None]
  - ANGIOEDEMA [None]
  - BRONCHOSPASM [None]
  - DIARRHOEA [None]
  - DYSARTHRIA [None]
  - DYSPHAGIA [None]
  - DYSPNOEA [None]
  - LARYNGOSPASM [None]
  - ODYNOPHAGIA [None]
  - PRURITUS [None]
  - RESPIRATORY DISTRESS [None]
  - STRIDOR [None]
  - VOMITING [None]
  - WHEEZING [None]
